FAERS Safety Report 12154886 (Version 2)
Quarter: 2016Q1

REPORT INFORMATION
  Report Type: Spontaneous
  Country: DE (occurrence: DE)
  Receive Date: 20160307
  Receipt Date: 20160325
  Transmission Date: 20160526
  Serious: Yes (Hospitalization, Other)
  Sender: FDA-Public Use
  Company Number: DE-PFIZER INC-2016083717

PATIENT
  Age: 63 Year
  Sex: Male
  Weight: 180 kg

DRUGS (1)
  1. LYRICA [Suspect]
     Active Substance: PREGABALIN
     Indication: PAIN
     Dosage: 225 MG, DAILY
     Route: 048

REACTIONS (2)
  - Left ventricular failure [Recovered/Resolved]
  - Pulmonary oedema [Recovered/Resolved]
